FAERS Safety Report 16587744 (Version 2)
Quarter: 2019Q3

REPORT INFORMATION
  Report Type: Spontaneous
  Country: FR (occurrence: FR)
  Receive Date: 20190717
  Receipt Date: 20190813
  Transmission Date: 20191004
  Serious: Yes (Hospitalization)
  Sender: FDA-Public Use
  Company Number: FR-ALLERGAN-1928929US

PATIENT
  Sex: Female
  Weight: 3.98 kg

DRUGS (3)
  1. TERCIAN [Suspect]
     Active Substance: CYAMEMAZINE
     Indication: BIPOLAR DISORDER
     Dosage: 45 MG
     Route: 064
  2. ESCITALOPRAM OXALATE - BP [Suspect]
     Active Substance: ESCITALOPRAM OXALATE
     Indication: BIPOLAR DISORDER
     Dosage: 10 MG, QD
     Route: 064
  3. SERESTA [Suspect]
     Active Substance: OXAZEPAM
     Indication: BIPOLAR DISORDER
     Dosage: 150 MG, QD
     Route: 064

REACTIONS (4)
  - Cyanosis [Recovered/Resolved]
  - Foetal exposure during pregnancy [Unknown]
  - Hypotonia neonatal [Recovered/Resolved]
  - Bradypnoea [Recovered/Resolved]

NARRATIVE: CASE EVENT DATE: 20190619
